FAERS Safety Report 19985236 (Version 1)
Quarter: 2021Q4

REPORT INFORMATION
  Report Type: Spontaneous
  Country: ZA (occurrence: ZA)
  Receive Date: 20211022
  Receipt Date: 20211022
  Transmission Date: 20220303
  Serious: Yes (Other)
  Sender: FDA-Public Use
  Company Number: ZA-PFIZER INC-202101374448

PATIENT
  Sex: Male

DRUGS (2)
  1. DESVENLAFAXINE SUCCINATE [Suspect]
     Active Substance: DESVENLAFAXINE SUCCINATE
     Dosage: 150 MG, DAILY
  2. REXULTI [Suspect]
     Active Substance: BREXPIPRAZOLE

REACTIONS (7)
  - Major depression [Unknown]
  - Pain in extremity [Unknown]
  - Restlessness [Unknown]
  - Agitation [Unknown]
  - Somnolence [Unknown]
  - Fatigue [Unknown]
  - Disturbance in attention [Unknown]
